FAERS Safety Report 4349072-3 (Version None)
Quarter: 2004Q2

REPORT INFORMATION
  Report Type: 
  Country: None (occurrence: None)
  Receive Date: 20040423
  Receipt Date: 20040414
  Transmission Date: 20050107
  Serious: Yes (Hospitalization)
  Sender: FDA-Public Use
  Company Number: MEST00204001059

PATIENT
  Age: 58 Year
  Sex: Male

DRUGS (3)
  1. MESALAZINE (MANUFACTURER UNKNOWN) (MESALAZINE (MANUFACTURER UNKNOWN) ) [Suspect]
     Indication: COLITIS ULCERATIVE
     Dosage: DAILY
     Dates: start: 19970101, end: 20010901
  2. CORTISONE (CORTISONE) [Concomitant]
  3. AZATHIOPRINE [Concomitant]

REACTIONS (10)
  - ABDOMINAL PAIN UPPER [None]
  - DIARRHOEA [None]
  - DRUG EFFECT DECREASED [None]
  - HEADACHE [None]
  - HYPERTENSION [None]
  - LIPIDS ABNORMAL [None]
  - MEDICATION ERROR [None]
  - NEPHRITIS INTERSTITIAL [None]
  - PAIN [None]
  - URINARY TRACT INFECTION [None]
